FAERS Safety Report 5125097-5 (Version None)
Quarter: 2006Q4

REPORT INFORMATION
  Report Type: 
  Country: None (occurrence: None)
  Receive Date: 20061010
  Receipt Date: 20061010
  Transmission Date: 20070319
  Serious: Yes (Hospitalization)
  Sender: FDA-Public Use
  Company Number: None

PATIENT
  Age: 93 Year
  Sex: Male

DRUGS (3)
  1. PROPRANOLOL [Suspect]
     Indication: TREMOR
     Dosage: 10 MG BID
     Dates: start: 20020501
  2. HYDROCHLOROTHIAZIDE [Concomitant]
  3. TERAZOSIN HCL [Concomitant]

REACTIONS (2)
  - BRADYCARDIA [None]
  - BUNDLE BRANCH BLOCK RIGHT [None]
